FAERS Safety Report 15120108 (Version 8)
Quarter: 2020Q1

REPORT INFORMATION
  Report Type: Report from Study
  Country: US (occurrence: US)
  Receive Date: 20180709
  Receipt Date: 20200305
  Transmission Date: 20200409
  Serious: Yes (Hospitalization, Other)
  Sender: FDA-Public Use
  Company Number: PHEH2018US026871

PATIENT
  Age: 58 Year
  Sex: Male
  Weight: 65 kg

DRUGS (5)
  1. ZOFRAN [Concomitant]
     Active Substance: ONDANSETRON HYDROCHLORIDE
     Indication: NAUSEA
     Dosage: 1 DF, TID
     Route: 065
     Dates: start: 20180410
  2. MYFORTIC [Suspect]
     Active Substance: MYCOPHENOLATE SODIUM
     Indication: RENAL TRANSPLANT
     Dosage: 360 MG, BID
     Route: 048
     Dates: start: 20170101
  3. PROGRAF [Suspect]
     Active Substance: TACROLIMUS
     Indication: PRODUCT USED FOR UNKNOWN INDICATION
     Dosage: 1.5 DF (0.5 MG AND 1 MG), BID
     Route: 048
     Dates: start: 20171211
  4. CALCITROL [Concomitant]
     Indication: HYPERPARATHYROIDISM
     Dosage: 1 DF, QD
     Route: 048
     Dates: start: 20180223
  5. VALCYTE [Concomitant]
     Active Substance: VALGANCICLOVIR HYDROCHLORIDE
     Indication: CYTOMEGALOVIRUS INFECTION
     Dosage: UNK
     Route: 065
     Dates: end: 201412

REACTIONS (13)
  - Osteoporosis [Unknown]
  - Fabry^s disease [Unknown]
  - Nasopharyngitis [Unknown]
  - Back injury [Unknown]
  - Cytomegalovirus infection [Unknown]
  - Cardiac disorder [Unknown]
  - Blood bilirubin increased [Unknown]
  - Anxiety [Unknown]
  - Parkinson^s disease [Recovering/Resolving]
  - Fall [Recovering/Resolving]
  - Cardiomyopathy [Unknown]
  - Spinal fracture [Unknown]
  - Arthropod bite [Unknown]

NARRATIVE: CASE EVENT DATE: 201608
